FAERS Safety Report 9257890 (Version 6)
Quarter: 2013Q2

REPORT INFORMATION
  Report Type: Spontaneous
  Country: CA (occurrence: CA)
  Receive Date: 20130426
  Receipt Date: 20130619
  Transmission Date: 20140414
  Serious: Yes (Life-Threatening, Hospitalization)
  Sender: FDA-Public Use
  Company Number: CA-SANOFI-AVENTIS-2013SA040920

PATIENT
  Age: 68 Year
  Sex: Female
  Weight: 97.5 kg

DRUGS (16)
  1. DOCETAXEL [Suspect]
     Indication: PRODUCT USED FOR UNKNOWN INDICATION
     Route: 065
     Dates: start: 20130307
  2. DOCETAXEL [Suspect]
     Indication: PRODUCT USED FOR UNKNOWN INDICATION
     Route: 065
     Dates: start: 20130327
  3. CARBOPLATIN [Suspect]
     Indication: PRODUCT USED FOR UNKNOWN INDICATION
     Dosage: DOSE CAPTURED FROM TEXT.
     Route: 065
     Dates: start: 20130307
  4. CARBOPLATIN [Suspect]
     Indication: PRODUCT USED FOR UNKNOWN INDICATION
     Dosage: DOSE CAPTURED FROM TEXT.
     Route: 065
     Dates: start: 20130327
  5. TRASTUZUMAB [Concomitant]
     Indication: BREAST CANCER
     Route: 058
     Dates: start: 20130307
  6. IRBESARTAN [Concomitant]
     Dates: start: 2003
  7. EZETROL [Concomitant]
     Dates: start: 1998
  8. VENLAFAXINE [Concomitant]
  9. ECTOSONE [Concomitant]
     Dates: start: 2003
  10. ZOVIRAX [Concomitant]
     Dates: start: 1993
  11. DECADRON [Concomitant]
     Dates: start: 20130306
  12. ZOFRAN [Concomitant]
     Dates: start: 20130307
  13. PERCOCET [Concomitant]
     Dates: start: 20130310
  14. SENNA [Concomitant]
     Dates: start: 20130311
  15. MAXERAN [Concomitant]
     Dates: start: 201303
  16. CIPROFLOXACIN [Concomitant]
     Indication: URINARY TRACT INFECTION

REACTIONS (4)
  - Dysuria [Unknown]
  - Neutropenia [Recovered/Resolved with Sequelae]
  - Abdominal pain [Unknown]
  - Eructation [Unknown]
